FAERS Safety Report 21770904 (Version 1)
Quarter: 2022Q4

REPORT INFORMATION
  Report Type: Spontaneous
  Country: UZ (occurrence: None)
  Receive Date: 20221223
  Receipt Date: 20221223
  Transmission Date: 20230113
  Serious: Yes (Other)
  Sender: FDA-Public Use
  Company Number: UZ-Merck Healthcare KGaA-9374355

PATIENT
  Age: 44 Year
  Sex: Female

DRUGS (1)
  1. GLUCOPHAGE [Suspect]
     Active Substance: METFORMIN HYDROCHLORIDE
     Indication: Obesity
     Route: 048

REACTIONS (3)
  - Hypothyroidism [Unknown]
  - Food craving [Unknown]
  - Off label use [Unknown]

NARRATIVE: CASE EVENT DATE: 20220101
